FAERS Safety Report 7263159-7 (Version None)
Quarter: 2011Q1

REPORT INFORMATION
  Report Type: 
  Country: None (occurrence: None)
  Receive Date: 20110130
  Receipt Date: 20101012
  Transmission Date: 20110831
  Serious: No
  Sender: FDA-Public Use
  Company Number: US-ABBOTT-10P-163-0677784-00

PATIENT
  Sex: Male
  Weight: 90.8 kg

DRUGS (4)
  1. IMODIUM MULTI-SYMPTOM RELIEF [Concomitant]
     Indication: PRODUCT USED FOR UNKNOWN INDICATION
  2. PENTASA [Concomitant]
     Indication: PRODUCT USED FOR UNKNOWN INDICATION
  3. HUMIRA [Suspect]
     Indication: CROHN'S DISEASE
     Dosage: 160MG, THEN 80MG AND THEN 40MG
     Dates: start: 20101001
  4. PREDNISONE [Concomitant]
     Indication: PRODUCT USED FOR UNKNOWN INDICATION

REACTIONS (1)
  - INJECTION SITE PAIN [None]
